FAERS Safety Report 15740462 (Version 1)
Quarter: 2018Q4

REPORT INFORMATION
  Report Type: Spontaneous
  Country: DE (occurrence: DE)
  Receive Date: 20181219
  Receipt Date: 20181219
  Transmission Date: 20190205
  Serious: Yes (Other)
  Sender: FDA-Public Use
  Company Number: DE-PFIZER INC-2018515493

PATIENT
  Age: 33 Year
  Sex: Male
  Weight: 96 kg

DRUGS (1)
  1. XELJANZ [Suspect]
     Active Substance: TOFACITINIB CITRATE
     Indication: COLITIS ULCERATIVE
     Dosage: 10 MG, TWICE A DAY
     Route: 048
     Dates: start: 201810, end: 201811

REACTIONS (7)
  - Cholestasis [Unknown]
  - Hyperbilirubinaemia [Unknown]
  - Transaminases increased [Unknown]
  - Vomiting [Unknown]
  - Drug-induced liver injury [Recovering/Resolving]
  - Abdominal pain upper [Unknown]
  - Nausea [Unknown]

NARRATIVE: CASE EVENT DATE: 201811
